FAERS Safety Report 25548293 (Version 1)
Quarter: 2025Q3

REPORT INFORMATION
  Report Type: Spontaneous
  Country: US (occurrence: US)
  Receive Date: 20250714
  Receipt Date: 20250714
  Transmission Date: 20251021
  Serious: Yes (Hospitalization)
  Sender: MYLAN
  Company Number: US-MYLANLABS-2025M1056518

PATIENT

DRUGS (32)
  1. FENTANYL [Suspect]
     Active Substance: FENTANYL
     Indication: Analgesic intervention supportive therapy
     Dosage: 10 MILLILITER, QH (2 ?G/ML INFUSION)
  2. FENTANYL [Suspect]
     Active Substance: FENTANYL
     Dosage: 10 MILLILITER, QH (2 ?G/ML INFUSION)
  3. FENTANYL [Suspect]
     Active Substance: FENTANYL
     Dosage: 10 MILLILITER, QH (2 ?G/ML INFUSION)
     Route: 064
  4. FENTANYL [Suspect]
     Active Substance: FENTANYL
     Dosage: 10 MILLILITER, QH (2 ?G/ML INFUSION)
     Route: 064
  5. FENTANYL [Suspect]
     Active Substance: FENTANYL
     Dosage: 10 MILLILITER, QH (2 ?G/ML INFUSION)
  6. FENTANYL [Suspect]
     Active Substance: FENTANYL
     Dosage: 10 MILLILITER, QH (2 ?G/ML INFUSION)
  7. FENTANYL [Suspect]
     Active Substance: FENTANYL
     Dosage: 10 MILLILITER, QH (2 ?G/ML INFUSION)
     Route: 064
  8. FENTANYL [Suspect]
     Active Substance: FENTANYL
     Dosage: 10 MILLILITER, QH (2 ?G/ML INFUSION)
     Route: 064
  9. FENTANYL [Suspect]
     Active Substance: FENTANYL
  10. FENTANYL [Suspect]
     Active Substance: FENTANYL
     Route: 064
  11. FENTANYL [Suspect]
     Active Substance: FENTANYL
  12. FENTANYL [Suspect]
     Active Substance: FENTANYL
  13. FENTANYL [Suspect]
     Active Substance: FENTANYL
     Route: 064
  14. FENTANYL [Suspect]
     Active Substance: FENTANYL
     Route: 064
  15. FENTANYL [Suspect]
     Active Substance: FENTANYL
  16. FENTANYL [Suspect]
     Active Substance: FENTANYL
     Route: 064
  17. BUPIVACAINE [Suspect]
     Active Substance: BUPIVACAINE
     Indication: Epidural analgesia
  18. BUPIVACAINE [Suspect]
     Active Substance: BUPIVACAINE
  19. BUPIVACAINE [Suspect]
     Active Substance: BUPIVACAINE
     Route: 064
  20. BUPIVACAINE [Suspect]
     Active Substance: BUPIVACAINE
     Route: 064
  21. BUPIVACAINE [Suspect]
     Active Substance: BUPIVACAINE
  22. BUPIVACAINE [Suspect]
     Active Substance: BUPIVACAINE
  23. BUPIVACAINE [Suspect]
     Active Substance: BUPIVACAINE
     Route: 064
  24. BUPIVACAINE [Suspect]
     Active Substance: BUPIVACAINE
     Route: 064
  25. LIDOCAINE [Suspect]
     Active Substance: LIDOCAINE
     Indication: Epidural analgesia
  26. LIDOCAINE [Suspect]
     Active Substance: LIDOCAINE
  27. LIDOCAINE [Suspect]
     Active Substance: LIDOCAINE
     Route: 064
  28. LIDOCAINE [Suspect]
     Active Substance: LIDOCAINE
     Route: 064
  29. LIDOCAINE [Suspect]
     Active Substance: LIDOCAINE
  30. LIDOCAINE [Suspect]
     Active Substance: LIDOCAINE
  31. LIDOCAINE [Suspect]
     Active Substance: LIDOCAINE
     Route: 064
  32. LIDOCAINE [Suspect]
     Active Substance: LIDOCAINE
     Route: 064

REACTIONS (3)
  - Neonatal respiratory depression [Recovered/Resolved]
  - Foetal exposure during pregnancy [Recovered/Resolved]
  - Off label use [Unknown]
